FAERS Safety Report 12196599 (Version 1)
Quarter: 2016Q1

REPORT INFORMATION
  Report Type: Report from Study
  Country: JP (occurrence: JP)
  Receive Date: 20160321
  Receipt Date: 20160321
  Transmission Date: 20160526
  Serious: Yes (Death, Hospitalization, Other)
  Sender: FDA-Public Use
  Company Number: JP-TEVA-2011002108

PATIENT
  Age: 64 Year
  Sex: Male
  Weight: 54.6 kg

DRUGS (13)
  1. BENDAMUSTINE HCL [Suspect]
     Active Substance: BENDAMUSTINE HYDROCHLORIDE
     Dosage: 180 MG/BODY
     Route: 042
     Dates: start: 20110401, end: 20110402
  2. BENDAMUSTINE HCL [Suspect]
     Active Substance: BENDAMUSTINE HYDROCHLORIDE
     Indication: MANTLE CELL LYMPHOMA
     Dosage: 180 MG/BODY, PHARMACEUTICAL FORM: POWDER (EXCEPT DUSTING POWDER)
     Route: 042
     Dates: start: 20110107, end: 20110108
  3. BENDAMUSTINE HCL [Suspect]
     Active Substance: BENDAMUSTINE HYDROCHLORIDE
     Dosage: 120 MG/M2 DAILY; 180 MG/BODY
     Route: 042
     Dates: start: 20110311, end: 20110312
  4. METFORMIN HYDROCHLORIDE. [Concomitant]
     Active Substance: METFORMIN HYDROCHLORIDE
     Indication: DIABETES MELLITUS
     Dosage: PHARMACEUTICAL FORM: FORMULATION UNKNOWN
     Route: 065
     Dates: start: 20110202
  5. BENDAMUSTINE HCL [Suspect]
     Active Substance: BENDAMUSTINE HYDROCHLORIDE
     Dosage: 180 MG/BODY
     Route: 042
     Dates: start: 20110128, end: 20110129
  6. MAGNESIUM OXIDE. [Concomitant]
     Active Substance: MAGNESIUM OXIDE
     Indication: CONSTIPATION
     Dosage: PHARMACEUTICAL FORM: FORMULATION UNKNOWN
     Route: 065
  7. INSULIN HUMAN [Concomitant]
     Active Substance: INSULIN HUMAN
     Indication: DIABETES MELLITUS
     Dosage: PHARMACEUTICAL FORM: FORMULATION UNKNOWN
     Route: 065
     Dates: start: 20110421, end: 20110426
  8. BENDAMUSTINE HCL [Suspect]
     Active Substance: BENDAMUSTINE HYDROCHLORIDE
     Dosage: 180 MG/BODY
     Route: 042
     Dates: start: 20110218, end: 20110219
  9. ALLOPURINOL. [Concomitant]
     Active Substance: ALLOPURINOL
     Indication: HYPERURICAEMIA
     Dosage: PHARMACEUTICAL FORM: FORMULATION UNKNOWN
     Route: 065
  10. SITAGLIPTIN PHOSPHATE [Concomitant]
     Active Substance: SITAGLIPTIN PHOSPHATE
     Indication: DIABETES MELLITUS
     Dosage: PHARMACEUTICAL FORM: FORMULATION UNKNOWN
     Route: 065
  11. VOGLIBOSE [Concomitant]
     Active Substance: VOGLIBOSE
     Indication: DIABETES MELLITUS
     Dosage: UNKNOWN FREQ. PHARMACEUTICAL FORM: FORMULATION UNKNOWN
     Route: 065
  12. PIOGLITAZONE. [Concomitant]
     Active Substance: PIOGLITAZONE
     Indication: DIABETES MELLITUS
     Dosage: PHARMACEUTICAL FORM: FORMULATION UNKNOWN
     Route: 065
  13. GLIMEPIRIDE. [Concomitant]
     Active Substance: GLIMEPIRIDE
     Indication: DIABETES MELLITUS
     Dosage: PHARMACEUTICAL FORM: FORMULATION UNKNOWN
     Route: 065

REACTIONS (14)
  - C-reactive protein increased [Not Recovered/Not Resolved]
  - Blood lactate dehydrogenase increased [Recovered/Resolved]
  - Anaemia [Not Recovered/Not Resolved]
  - Mantle cell lymphoma [Fatal]
  - Hypokalaemia [Recovered/Resolved]
  - Disease progression [Fatal]
  - Interstitial lung disease [Fatal]
  - Diabetes mellitus [Recovering/Resolving]
  - Lymphocyte count decreased [Not Recovered/Not Resolved]
  - Platelet count decreased [Not Recovered/Not Resolved]
  - Herpes zoster [Recovering/Resolving]
  - White blood cell count decreased [Not Recovered/Not Resolved]
  - White blood cell count decreased [Not Recovered/Not Resolved]
  - Neutrophil count decreased [Not Recovered/Not Resolved]

NARRATIVE: CASE EVENT DATE: 20110202
